FAERS Safety Report 7821929-8 (Version None)
Quarter: 2011Q4

REPORT INFORMATION
  Report Type: 
  Country: None (occurrence: None)
  Receive Date: 20111018
  Receipt Date: 20110620
  Transmission Date: 20120403
  Serious: No
  Sender: FDA-Public Use
  Company Number: US-ASTRAZENECA-2011SE37251

PATIENT
  Age: 40 Year
  Sex: Female

DRUGS (4)
  1. ALLEGRA [Concomitant]
  2. PREDNISONE [Concomitant]
  3. FLONASE [Concomitant]
  4. SYMBICORT [Suspect]
     Indication: ASTHMA
     Dosage: 160/4.5 MG BID
     Route: 055
     Dates: start: 20110401

REACTIONS (2)
  - UPPER-AIRWAY COUGH SYNDROME [None]
  - SEASONAL ALLERGY [None]
